FAERS Safety Report 20048962 (Version 1)
Quarter: 2021Q4

REPORT INFORMATION
  Report Type: Spontaneous
  Country: US (occurrence: None)
  Receive Date: 20211109
  Receipt Date: 20211109
  Transmission Date: 20220303
  Serious: No
  Sender: FDA-Public Use
  Company Number: None

PATIENT
  Age: 83 Year
  Sex: Female
  Weight: 44.1 kg

DRUGS (5)
  1. PIQRAY [Suspect]
     Active Substance: ALPELISIB
     Indication: Malignant lymphoid neoplasm
     Dosage: FREQUENCY : DAILY;?
     Route: 048
     Dates: start: 20210216, end: 20211109
  2. PIQRAY [Suspect]
     Active Substance: ALPELISIB
     Indication: Bone cancer
  3. PIQRAY [Suspect]
     Active Substance: ALPELISIB
     Indication: Breast cancer female
  4. VALACYCLOVIR [Concomitant]
     Active Substance: VALACYCLOVIR HYDROCHLORIDE
  5. ALPRAZOLAM [Concomitant]
     Active Substance: ALPRAZOLAM

REACTIONS (1)
  - Disease progression [None]

NARRATIVE: CASE EVENT DATE: 20211109
